FAERS Safety Report 4627677-X (Version None)
Quarter: 2005Q2

REPORT INFORMATION
  Report Type: 
  Country: None (occurrence: None)
  Receive Date: 20050401
  Receipt Date: 20050401
  Transmission Date: 20051028
  Serious: Yes (Hospitalization)
  Sender: FDA-Public Use
  Company Number: None

PATIENT
  Age: 82 Year
  Sex: Female

DRUGS (1)
  1. NAPROSYN [Suspect]
     Indication: BACK PAIN
     Dosage: 250MG AS DIRECTED ORAL
     Route: 048
     Dates: start: 20050202, end: 20050216

REACTIONS (2)
  - MELAENA [None]
  - RECTAL HAEMORRHAGE [None]
